FAERS Safety Report 16498926 (Version 1)
Quarter: 2019Q2

REPORT INFORMATION
  Report Type: Spontaneous
  Country: US (occurrence: US)
  Receive Date: 20190630
  Receipt Date: 20190630
  Transmission Date: 20190711
  Serious: No
  Sender: FDA-Public Use
  Company Number: US-EX USA HOLDINGS-EXHL20192294

PATIENT
  Age: 34 Year
  Sex: Female

DRUGS (5)
  1. MULTIVITAMIN [Concomitant]
     Active Substance: VITAMINS
     Indication: PRODUCT USED FOR UNKNOWN INDICATION
     Dosage: UNKNOWN
     Route: 065
  2. ESTARYLLA [Suspect]
     Active Substance: ETHINYL ESTRADIOL\NORGESTIMATE
     Indication: HORMONE REPLACEMENT THERAPY
  3. ADDERALL [Concomitant]
     Active Substance: AMPHETAMINE ASPARTATE\AMPHETAMINE SULFATE\DEXTROAMPHETAMINE SACCHARATE\DEXTROAMPHETAMINE SULFATE
     Indication: ATTENTION DEFICIT/HYPERACTIVITY DISORDER
     Dosage: 15 MG
     Route: 048
  4. PROPRANOLOL [Concomitant]
     Active Substance: PROPRANOLOL HYDROCHLORIDE
     Indication: PROPHYLAXIS
     Dosage: 80 MG
     Route: 065
  5. ESTARYLLA [Suspect]
     Active Substance: ETHINYL ESTRADIOL\NORGESTIMATE
     Indication: CONTRACEPTION
     Dosage: ONE TABLET
     Route: 048
     Dates: start: 20190616

REACTIONS (3)
  - Pruritus generalised [Not Recovered/Not Resolved]
  - Pain of skin [Not Recovered/Not Resolved]
  - Papule [Not Recovered/Not Resolved]

NARRATIVE: CASE EVENT DATE: 20190616
